FAERS Safety Report 19028904 (Version 1)
Quarter: 2021Q1

REPORT INFORMATION
  Report Type: Spontaneous
  Country: GB (occurrence: GB)
  Receive Date: 20210319
  Receipt Date: 20210319
  Transmission Date: 20210420
  Serious: Yes (Hospitalization, Other)
  Sender: FDA-Public Use
  Company Number: GB-HIKMA PHARMACEUTICALS USA INC.-GB-H14001-21-53849

PATIENT
  Age: 33 Year
  Sex: Male
  Weight: 68 kg

DRUGS (7)
  1. AMOXICILLIN. [Concomitant]
     Active Substance: AMOXICILLIN
     Indication: ILL-DEFINED DISORDER
     Dosage: UNKNOWN
     Route: 065
  2. LANSOPRAZOLE. [Concomitant]
     Active Substance: LANSOPRAZOLE
     Indication: ILL-DEFINED DISORDER
     Dosage: UNKNOWN
     Route: 065
  3. NITROFURANTOIN. [Concomitant]
     Active Substance: NITROFURANTOIN
     Indication: ILL-DEFINED DISORDER
     Dosage: UNKNOWN
     Route: 065
  4. CIPROFLOXACIN. [Suspect]
     Active Substance: CIPROFLOXACIN
     Indication: ILL-DEFINED DISORDER
     Dosage: UNKNOWN
     Route: 065
  5. FEXOFENADINE HYDROCHLORIDE. [Concomitant]
     Active Substance: FEXOFENADINE HYDROCHLORIDE
     Indication: ILL-DEFINED DISORDER
     Dosage: UNKNOWN
     Route: 065
  6. FOSTAIR [Concomitant]
     Active Substance: BECLOMETHASONE\FORMOTEROL
     Indication: ILL-DEFINED DISORDER
     Dosage: UNKNOWN
     Route: 065
  7. TRIMETHOPRIM. [Concomitant]
     Active Substance: TRIMETHOPRIM
     Indication: ILL-DEFINED DISORDER
     Dosage: UNKNOWN
     Route: 065

REACTIONS (6)
  - Tinnitus [Not Recovered/Not Resolved]
  - Myalgia [Not Recovered/Not Resolved]
  - Neuralgia [Recovering/Resolving]
  - Atrial fibrillation [Recovered/Resolved]
  - Tendon pain [Not Recovered/Not Resolved]
  - Abdominal pain [Recovering/Resolving]

NARRATIVE: CASE EVENT DATE: 20190907
